FAERS Safety Report 14022038 (Version 1)
Quarter: 2017Q3

REPORT INFORMATION
  Report Type: Spontaneous
  Country: US (occurrence: US)
  Receive Date: 20170928
  Receipt Date: 20170928
  Transmission Date: 20171128
  Serious: Yes (Life-Threatening)
  Sender: FDA-Public Use
  Company Number: None

PATIENT
  Age: 25 Year
  Sex: Male
  Weight: 78.75 kg

DRUGS (1)
  1. DIVALPROEX [Suspect]
     Active Substance: DIVALPROEX SODIUM
     Indication: OBSESSIVE-COMPULSIVE DISORDER

REACTIONS (11)
  - Apparent death [None]
  - Alopecia [None]
  - Dry skin [None]
  - Pruritus [None]
  - Nasal congestion [None]
  - Dry mouth [None]
  - Dyskinesia [None]
  - Sleep paralysis [None]
  - Dyspnoea [None]
  - Tongue disorder [None]
  - Skin tightness [None]

NARRATIVE: CASE EVENT DATE: 20170314
